FAERS Safety Report 5328407-9 (Version None)
Quarter: 2007Q2

REPORT INFORMATION
  Report Type: 
  Country: None (occurrence: None)
  Receive Date: 20070514
  Receipt Date: 20070427
  Transmission Date: 20071010
  Serious: Yes (Hospitalization)
  Sender: FDA-Public Use
  Company Number: DSA_29845_2007

PATIENT
  Sex: Female

DRUGS (17)
  1. TEMESTA (TEMESTA) (NOT SPECIFIED) [Suspect]
     Indication: AGITATION
     Dosage: 1.75 MG QD
     Dates: start: 20070130, end: 20070201
  2. TEMESTA (TEMESTA) (NOT SPECIFIED) [Suspect]
     Indication: DEPRESSION
     Dosage: 1.75 MG QD
     Dates: start: 20070130, end: 20070201
  3. TEMESTA (TEMESTA) (NOT SPECIFIED) [Suspect]
     Indication: INSOMNIA
     Dosage: 1.75 MG QD
     Dates: start: 20070130, end: 20070201
  4. TEMESTA (TEMESTA) (NOT SPECIFIED) [Suspect]
     Indication: AGITATION
     Dosage: SEE IMAGE
     Dates: start: 20070202, end: 20070202
  5. TEMESTA (TEMESTA) (NOT SPECIFIED) [Suspect]
     Indication: DEPRESSION
     Dosage: SEE IMAGE
     Dates: start: 20070202, end: 20070202
  6. TEMESTA (TEMESTA) (NOT SPECIFIED) [Suspect]
     Indication: INSOMNIA
     Dosage: SEE IMAGE
     Dates: start: 20070202, end: 20070202
  7. TEMESTA (TEMESTA) (NOT SPECIFIED) [Suspect]
     Indication: AGITATION
     Dosage: SEE IMAGE
     Dates: start: 20070203, end: 20070207
  8. TEMESTA (TEMESTA) (NOT SPECIFIED) [Suspect]
     Indication: DEPRESSION
     Dosage: SEE IMAGE
     Dates: start: 20070203, end: 20070207
  9. TEMESTA (TEMESTA) (NOT SPECIFIED) [Suspect]
     Indication: INSOMNIA
     Dosage: SEE IMAGE
     Dates: start: 20070203, end: 20070207
  10. TEMESTA (TEMESTA) (NOT SPECIFIED) [Suspect]
     Indication: AGITATION
     Dosage: SEE IMAGE
     Dates: start: 20070208, end: 20070208
  11. TEMESTA (TEMESTA) (NOT SPECIFIED) [Suspect]
     Indication: DEPRESSION
     Dosage: SEE IMAGE
     Dates: start: 20070208, end: 20070208
  12. TEMESTA (TEMESTA) (NOT SPECIFIED) [Suspect]
     Indication: INSOMNIA
     Dosage: SEE IMAGE
     Dates: start: 20070208, end: 20070208
  13. TEMESTA (TEMESTA) (NOT SPECIFIED) [Suspect]
     Indication: AGITATION
     Dosage: 2 MG QD
     Dates: start: 20070125, end: 20070125
  14. TEMESTA (TEMESTA) (NOT SPECIFIED) [Suspect]
     Indication: INSOMNIA
     Dosage: 2 MG QD
     Dates: start: 20070125, end: 20070125
  15. DOMINAL (DOMINAL) [Suspect]
     Indication: DEPRESSION
     Dosage: SEE IMAGE
     Dates: start: 20070124, end: 20070128
  16. DOMINAL (DOMINAL) [Suspect]
     Indication: DEPRESSION
     Dosage: SEE IMAGE
     Dates: start: 20070129, end: 20070130
  17. CIPRALEX [Concomitant]

REACTIONS (5)
  - CIRCULATORY COLLAPSE [None]
  - FALL [None]
  - INJURY [None]
  - JOINT DISLOCATION [None]
  - TENDON RUPTURE [None]
